FAERS Safety Report 6467329-7 (Version None)
Quarter: 2009Q4

REPORT INFORMATION
  Report Type: 
  Country: None (occurrence: None)
  Receive Date: 20091127
  Receipt Date: 20091117
  Transmission Date: 20100525
  Serious: Yes (Other)
  Sender: FDA-Public Use
  Company Number: ADR51222009

PATIENT
  Sex: Female

DRUGS (4)
  1. ARROW-SIMVA (MAH: ARROW PHARMACEUTICALS (NZ) LTD.) [Suspect]
     Indication: BLOOD CHOLESTEROL INCREASED
     Dosage: ORAL
     Route: 048
     Dates: end: 20091115
  2. PREDNISONE [Concomitant]
  3. DOXYCYCLINE [Concomitant]
  4. CANDASARTAN [Concomitant]

REACTIONS (3)
  - ASTHENIA [None]
  - BLOOD PRESSURE INCREASED [None]
  - DYSPNOEA [None]
